FAERS Safety Report 13765490 (Version 3)
Quarter: 2018Q2

REPORT INFORMATION
  Report Type: Spontaneous
  Country: US (occurrence: US)
  Receive Date: 20170718
  Receipt Date: 20180410
  Transmission Date: 20180711
  Serious: Yes (Other)
  Sender: FDA-Public Use
  Company Number: US-PFIZER INC-2017308317

PATIENT
  Age: 43 Year
  Sex: Female

DRUGS (7)
  1. NEURONTIN [Suspect]
     Active Substance: GABAPENTIN
     Indication: PAIN
     Dosage: ^AT A LOW DOSE^, 1X/DAY (AT BEDTIME)
     Dates: start: 1996, end: 199811
  2. NEURONTIN [Suspect]
     Active Substance: GABAPENTIN
     Indication: FIBROMYALGIA
     Dosage: UNK
     Dates: start: 2000, end: 2000
  3. IBUPROFEN. [Concomitant]
     Active Substance: IBUPROFEN
     Dosage: 800 MG, UNK
     Dates: start: 1994
  4. NEURONTIN [Suspect]
     Active Substance: GABAPENTIN
     Indication: SLEEP DISORDER
  5. NEURONTIN [Suspect]
     Active Substance: GABAPENTIN
     Indication: BIPOLAR DISORDER
  6. DARVOCET [Concomitant]
     Active Substance: ACETAMINOPHEN\PROPOXYPHENE HYDROCHLORIDE
     Dosage: UNK
     Dates: start: 1994
  7. FLEXERIL [Concomitant]
     Active Substance: CYCLOBENZAPRINE HYDROCHLORIDE
     Dosage: UNK
     Dates: end: 2002

REACTIONS (9)
  - Craniocerebral injury [Unknown]
  - Incontinence [Unknown]
  - Cerebrovascular accident [Not Recovered/Not Resolved]
  - Hypersomnia [Unknown]
  - Memory impairment [Unknown]
  - Drug ineffective for unapproved indication [Not Recovered/Not Resolved]
  - Cognitive disorder [Unknown]
  - Road traffic accident [Not Recovered/Not Resolved]
  - Balance disorder [Unknown]

NARRATIVE: CASE EVENT DATE: 199811
